FAERS Safety Report 25960809 (Version 2)
Quarter: 2025Q4

REPORT INFORMATION
  Report Type: Spontaneous
  Country: US (occurrence: US)
  Receive Date: 20251027
  Receipt Date: 20251031
  Transmission Date: 20260118
  Serious: No
  Sender: KARYOPHARM THERAPEUTICS
  Company Number: US-KARYOPHARM-2025KPT100858

PATIENT

DRUGS (13)
  1. SELINEXOR [Suspect]
     Active Substance: SELINEXOR
     Indication: Plasma cell myeloma
     Dosage: 80 MG WEEKLY
     Route: 048
     Dates: start: 20251016, end: 202510
  2. DIGOXIN [Concomitant]
     Active Substance: DIGOXIN
  3. TRAMADOL [Concomitant]
     Active Substance: TRAMADOL
  4. ELIQUIS [Concomitant]
     Active Substance: APIXABAN
  5. ZOLOFT [Concomitant]
     Active Substance: SERTRALINE HYDROCHLORIDE
  6. FLOMAX [Concomitant]
     Active Substance: TAMSULOSIN HYDROCHLORIDE
  7. GABAPENTIN [Concomitant]
     Active Substance: GABAPENTIN
  8. ZOVIRAX [Concomitant]
     Active Substance: ACYCLOVIR
  9. BACTRIM [Concomitant]
     Active Substance: SULFAMETHOXAZOLE\TRIMETHOPRIM
  10. DARZALEX [Concomitant]
     Active Substance: DARATUMUMAB
  11. FUROSEMIDE [Concomitant]
     Active Substance: FUROSEMIDE
  12. APREPITANT [Concomitant]
     Active Substance: APREPITANT
  13. DEXAMETHASONE [Concomitant]
     Active Substance: DEXAMETHASONE

REACTIONS (3)
  - Fall [Unknown]
  - Nausea [Unknown]
  - Asthenia [Recovering/Resolving]

NARRATIVE: CASE EVENT DATE: 20251001
